FAERS Safety Report 20536746 (Version 1)
Quarter: 2022Q1

REPORT INFORMATION
  Report Type: Spontaneous
  Country: CN (occurrence: CN)
  Receive Date: 20220302
  Receipt Date: 20220302
  Transmission Date: 20220423
  Serious: Yes (Hospitalization, Other)
  Sender: FDA-Public Use
  Company Number: CN-BAYER-2021-196102

PATIENT
  Age: 86 Year
  Sex: Female
  Weight: 55 kg

DRUGS (1)
  1. RIVAROXABAN [Suspect]
     Active Substance: RIVAROXABAN
     Indication: Venous thrombosis
     Dosage: 10 MG, QD
     Route: 048
     Dates: start: 20210616, end: 20210730

REACTIONS (19)
  - Memory impairment [Unknown]
  - Loss of consciousness [Unknown]
  - Oedema peripheral [Unknown]
  - Bedridden [Unknown]
  - Depressed mood [Unknown]
  - Neurological examination abnormal [Unknown]
  - Speech disorder [Unknown]
  - Dysphemia [Unknown]
  - Soliloquy [Unknown]
  - Musculoskeletal disorder [Unknown]
  - Poor quality sleep [Unknown]
  - Anal incontinence [Unknown]
  - Urinary incontinence [Unknown]
  - Chromaturia [Unknown]
  - Haematuria [Recovering/Resolving]
  - Prescribed underdose [Unknown]
  - Underdose [Unknown]
  - Product prescribing issue [Unknown]
  - Inappropriate schedule of product administration [Unknown]

NARRATIVE: CASE EVENT DATE: 20210616
